FAERS Safety Report 9422372 (Version 2)
Quarter: 2013Q3

REPORT INFORMATION
  Report Type: Spontaneous
  Country: JP (occurrence: JP)
  Receive Date: 20130722
  Receipt Date: 20130829
  Transmission Date: 20140515
  Serious: Yes (Other)
  Sender: FDA-Public Use
  Company Number: 2013036924

PATIENT
  Age: 23 Year
  Sex: Female

DRUGS (3)
  1. ALBUMINAR [Suspect]
     Indication: HEPATIC FAILURE
     Dosage: 5 % I.V. INJECTION 12.5 G/250 ML
  2. PLASMA, FRESH FROZEN [Concomitant]
  3. LACTULOSE (LACTULOSE) [Concomitant]

REACTIONS (2)
  - Pulmonary oedema [None]
  - Cardiac failure congestive [None]
